FAERS Safety Report 9452659 (Version 3)
Quarter: 2013Q3

REPORT INFORMATION
  Report Type: Spontaneous
  Country: US (occurrence: US)
  Receive Date: 20130812
  Receipt Date: 20130911
  Transmission Date: 20140515
  Serious: Yes (Other)
  Sender: FDA-Public Use
  Company Number: US-BAYER-2013-095123

PATIENT
  Age: 23 Year
  Sex: Female
  Weight: 101.59 kg

DRUGS (1)
  1. MIRENA [Suspect]
     Indication: CONTRACEPTION
     Dosage: 20 MCG/24HR, CONT
     Route: 015
     Dates: start: 20130725, end: 20130802

REACTIONS (3)
  - Uterine haemorrhage [None]
  - Blood pressure increased [None]
  - Gait disturbance [None]
